FAERS Safety Report 8267080-7 (Version None)
Quarter: 2012Q2

REPORT INFORMATION
  Report Type: 
  Country: None (occurrence: None)
  Receive Date: 20120409
  Receipt Date: 20120328
  Transmission Date: 20120825
  Serious: Yes (Hospitalization)
  Sender: FDA-Public Use
  Company Number: US-ELI_LILLY_AND_COMPANY-US201203009208

PATIENT
  Age: 75 Year
  Sex: Female

DRUGS (15)
  1. SPIRIVA [Concomitant]
  2. FORTEO [Suspect]
     Indication: OSTEOPOROSIS
     Dosage: 20 UG, QD
     Dates: start: 20110101, end: 20120318
  3. LISINOPRIL [Concomitant]
  4. FLUTICASONE FUROATE [Concomitant]
  5. FUROSEMIDE [Concomitant]
  6. VESICARE [Concomitant]
  7. SIMVASTATIN [Concomitant]
  8. AMLODIPINE [Concomitant]
  9. METHYL SALICYLATE [Concomitant]
  10. ANDOL [Concomitant]
  11. DILTIAZEM HCL [Concomitant]
  12. CHOLECALCIFEROL [Concomitant]
  13. CLOPIDOGREL [Concomitant]
  14. ADVAIR DISKUS 100/50 [Concomitant]
  15. ASPIRIN [Concomitant]

REACTIONS (3)
  - ATRIAL FIBRILLATION [None]
  - DRY MOUTH [None]
  - HEART VALVE INCOMPETENCE [None]
